FAERS Safety Report 6114537-0 (Version None)
Quarter: 2009Q1

REPORT INFORMATION
  Report Type: 
  Country: None (occurrence: None)
  Receive Date: 20090313
  Receipt Date: 20090312
  Transmission Date: 20090719
  Serious: Yes (Hospitalization)
  Sender: FDA-Public Use
  Company Number: US-RB-007522-08

PATIENT
  Sex: Male

DRUGS (3)
  1. SUBOXONE [Suspect]
     Indication: DRUG USE FOR UNKNOWN INDICATION
     Route: 060
     Dates: start: 20081209, end: 20081209
  2. SUBOXONE [Suspect]
     Route: 060
     Dates: start: 20081210, end: 20081210
  3. SUBOXONE [Suspect]
     Route: 060
     Dates: start: 20081211

REACTIONS (3)
  - DIZZINESS [None]
  - LETHARGY [None]
  - PNEUMONIA [None]
